FAERS Safety Report 17356407 (Version 4)
Quarter: 2021Q3

REPORT INFORMATION
  Report Type: Report from Study
  Country: CO (occurrence: CO)
  Receive Date: 20200131
  Receipt Date: 20210919
  Transmission Date: 20211014
  Serious: Yes (Hospitalization)
  Sender: FDA-Public Use
  Company Number: PHHY2016CO063388

PATIENT
  Age: 70 Year
  Sex: Female
  Weight: 68 kg

DRUGS (8)
  1. LOSARTAN. [Suspect]
     Active Substance: LOSARTAN
     Indication: HYPERTENSION
     Dosage: UNK
     Route: 065
  2. AMLODIPINE [Suspect]
     Active Substance: AMLODIPINE BESYLATE
     Indication: HYPERTENSION
     Dosage: UNK
     Route: 065
  3. ERYTHROPOIETIN [Concomitant]
     Active Substance: ERYTHROPOIETIN
     Indication: PRODUCT USED FOR UNKNOWN INDICATION
     Dosage: 2000 IU, Q72H (3 TIMES A WEEK)
     Route: 065
  4. FOLIC ACID. [Concomitant]
     Active Substance: FOLIC ACID
     Indication: PRODUCT USED FOR UNKNOWN INDICATION
     Dosage: UNK
     Route: 065
  5. JAKAVI [Suspect]
     Active Substance: RUXOLITINIB
     Indication: MYELOFIBROSIS
     Dosage: 20 MG, BID (ONE IN THE MORNING AND ONE IN THE AFTERNOON)
     Route: 048
     Dates: start: 20160223
  6. JAKAVI [Suspect]
     Active Substance: RUXOLITINIB
     Dosage: 20 MG, Q12H
     Route: 048
  7. JAKAVI [Suspect]
     Active Substance: RUXOLITINIB
     Dosage: 40 MG, QD
     Route: 048
     Dates: start: 20170131
  8. ACETAMINOPHEN. [Concomitant]
     Active Substance: ACETAMINOPHEN
     Indication: PRODUCT USED FOR UNKNOWN INDICATION
     Dosage: UNK
     Route: 065

REACTIONS (19)
  - Chills [Unknown]
  - Eating disorder [Unknown]
  - General physical health deterioration [Unknown]
  - Pyrexia [Unknown]
  - Post procedural infection [Unknown]
  - Post procedural haematoma [Unknown]
  - Weight decreased [Unknown]
  - Inappropriate schedule of product administration [Unknown]
  - Haemoglobin abnormal [Unknown]
  - Nasopharyngitis [Unknown]
  - Syncope [Unknown]
  - White blood cell count decreased [Unknown]
  - Dizziness [Unknown]
  - Blood pressure increased [Unknown]
  - White blood cell count increased [Unknown]
  - Fatigue [Unknown]
  - Headache [Unknown]
  - Splenomegaly [Unknown]
  - Thrombosis [Unknown]

NARRATIVE: CASE EVENT DATE: 20160323
